FAERS Safety Report 16940943 (Version 1)
Quarter: 2019Q4

REPORT INFORMATION
  Report Type: Spontaneous
  Country: US (occurrence: US)
  Receive Date: 20191018
  Receipt Date: 20191018
  Transmission Date: 20200122
  Serious: Yes (Death)
  Sender: FDA-Public Use
  Company Number: None

PATIENT
  Age: 48 Year
  Sex: Male
  Weight: 90 kg

DRUGS (22)
  1. APIXABAN [Concomitant]
     Active Substance: APIXABAN
  2. HYDRALAZINE [Concomitant]
     Active Substance: HYDRALAZINE HYDROCHLORIDE
  3. METOPROLOL. [Concomitant]
     Active Substance: METOPROLOL
  4. FOLIC ACID. [Concomitant]
     Active Substance: FOLIC ACID
  5. LOKELMA [Suspect]
     Active Substance: SODIUM ZIRCONIUM CYCLOSILICATE
     Indication: HYPERKALAEMIA
     Route: 048
     Dates: start: 20190615, end: 20190619
  6. AMLODIPINE [Concomitant]
     Active Substance: AMLODIPINE BESYLATE
  7. ONDANSETRON [Concomitant]
     Active Substance: ONDANSETRON
  8. SEROQUEL [Concomitant]
     Active Substance: QUETIAPINE FUMARATE
  9. ALBUTEROL. [Concomitant]
     Active Substance: ALBUTEROL
  10. ATORVASTATIN [Concomitant]
     Active Substance: ATORVASTATIN
  11. LACTULOSE. [Concomitant]
     Active Substance: LACTULOSE
  12. SEVELAMER [Concomitant]
     Active Substance: SEVELAMER
  13. GABAPENTIN. [Concomitant]
     Active Substance: GABAPENTIN
  14. ALUMINUM HYDROXIDE. [Concomitant]
     Active Substance: ALUMINUM HYDROXIDE
  15. ERGOCALCIFEROL. [Concomitant]
     Active Substance: ERGOCALCIFEROL
  16. GLYCOPYRROLATE. [Concomitant]
     Active Substance: GLYCOPYRROLATE
  17. HEPARIN [Concomitant]
     Active Substance: HEPARIN SODIUM
  18. LISPRO [Concomitant]
     Active Substance: INSULIN LISPRO
  19. MIDODRINE [Concomitant]
     Active Substance: MIDODRINE
  20. CALCITRIOL. [Concomitant]
     Active Substance: CALCITRIOL
  21. LEVOTHYROXINE. [Concomitant]
     Active Substance: LEVOTHYROXINE
  22. PANTOPRAZOLE [Concomitant]
     Active Substance: PANTOPRAZOLE

REACTIONS (4)
  - Gastrointestinal necrosis [None]
  - Appendix disorder [None]
  - Ischaemia [None]
  - Ileus [None]

NARRATIVE: CASE EVENT DATE: 20190615
